FAERS Safety Report 6556538-4 (Version None)
Quarter: 2010Q1

REPORT INFORMATION
  Report Type: 
  Country: None (occurrence: None)
  Receive Date: 20100128
  Receipt Date: 20100120
  Transmission Date: 20100710
  Serious: Yes (Other)
  Sender: FDA-Public Use
  Company Number: JP-PFIZER INC-2010009125

PATIENT
  Sex: Male

DRUGS (1)
  1. REVATIO [Suspect]
     Route: 048

REACTIONS (4)
  - BLOOD PRESSURE DECREASED [None]
  - CHROMATOPSIA [None]
  - OVERDOSE [None]
  - SUICIDE ATTEMPT [None]
